FAERS Safety Report 11560432 (Version 1)
Quarter: 2015Q3

REPORT INFORMATION
  Report Type: Spontaneous
  Country: US (occurrence: US)
  Receive Date: 20150928
  Receipt Date: 20150928
  Transmission Date: 20151125
  Serious: No
  Sender: FDA-Public Use
  Company Number: US-MYLANLABS-2015M1011844

PATIENT
  Age: 76 Year
  Sex: Male
  Weight: 126.98 kg

DRUGS (1)
  1. FUROSEMIDE TABLETS USP [Suspect]
     Active Substance: FUROSEMIDE
     Indication: OEDEMA
     Dosage: 40 MG, TID
     Route: 048
     Dates: start: 201409

REACTIONS (1)
  - Productive cough [Not Recovered/Not Resolved]

NARRATIVE: CASE EVENT DATE: 201409
